FAERS Safety Report 13554026 (Version 1)
Quarter: 2017Q2

REPORT INFORMATION
  Report Type: Spontaneous
  Country: US (occurrence: US)
  Receive Date: 20170517
  Receipt Date: 20170517
  Transmission Date: 20170830
  Serious: No
  Sender: FDA-Public Use
  Company Number: US-MYLANLABS-2016M1047166

PATIENT
  Sex: Female

DRUGS (3)
  1. EXTINA [Suspect]
     Active Substance: KETOCONAZOLE
     Indication: ALOPECIA
     Dosage: UNK, QD
     Dates: start: 201401, end: 20140305
  2. ALEVE [Suspect]
     Active Substance: NAPROXEN SODIUM
     Indication: BACK PAIN
     Dosage: 1 TABLET, PRN(EVERY 3-4 WEEKS)
     Route: 048
     Dates: start: 201401, end: 20140303
  3. VITAMIN B C COMPLEX [Concomitant]

REACTIONS (4)
  - Lip discolouration [None]
  - Cheilitis [Recovering/Resolving]
  - Cheilitis [None]
  - Lip swelling [None]

NARRATIVE: CASE EVENT DATE: 2014
